FAERS Safety Report 7429679-7 (Version None)
Quarter: 2011Q2

REPORT INFORMATION
  Report Type: 
  Country: None (occurrence: None)
  Receive Date: 20110421
  Receipt Date: 20110331
  Transmission Date: 20111010
  Serious: Yes (Hospitalization)
  Sender: FDA-Public Use
  Company Number: FR-PFIZER INC-2010072197

PATIENT
  Age: 80 Year
  Sex: Female

DRUGS (12)
  1. LASIX [Concomitant]
  2. HEMIGOXINE NATIVELLE [Concomitant]
  3. IPRATROPIUM BROMIDE [Concomitant]
  4. ACETAMINOPHEN [Concomitant]
  5. TAZOCILLINE [Suspect]
     Dosage: UNK
     Route: 042
     Dates: start: 20100414, end: 20100424
  6. GENTAMICIN ^DAKOTA PHARM^ [Suspect]
     Dosage: UNK
     Route: 051
     Dates: start: 20100414, end: 20100416
  7. ALDACTONE [Concomitant]
  8. UMULINE [Concomitant]
  9. PREVISCAN [Concomitant]
  10. DALACINE [Suspect]
     Dosage: UNK
     Route: 048
     Dates: start: 20100414, end: 20100424
  11. DIFFU K [Concomitant]
  12. SALBUTAMOL [Concomitant]

REACTIONS (2)
  - TOXIC SKIN ERUPTION [None]
  - RASH ERYTHEMATOUS [None]
